FAERS Safety Report 6118237-2 (Version None)
Quarter: 2009Q1

REPORT INFORMATION
  Report Type: 
  Country: None (occurrence: None)
  Receive Date: 20090314
  Receipt Date: 20090210
  Transmission Date: 20090719
  Serious: No
  Sender: FDA-Public Use
  Company Number: US-ABBOTT-09P-163-0503129-00

PATIENT
  Sex: Female
  Weight: 104.42 kg

DRUGS (3)
  1. HUMIRA [Suspect]
     Indication: CROHN'S DISEASE
     Route: 058
     Dates: start: 20081215
  2. POTASSIUM CHLORIDE [Concomitant]
     Indication: ELECTROLYTE SUBSTITUTION THERAPY
  3. LEVOTHYROXINE SODIUM [Concomitant]
     Indication: HYPOTHYROIDISM

REACTIONS (7)
  - ABASIA [None]
  - ABDOMINAL PAIN UPPER [None]
  - ASTHENIA [None]
  - BONE PAIN [None]
  - FLATULENCE [None]
  - HEADACHE [None]
  - SOMNOLENCE [None]
